FAERS Safety Report 21963284 (Version 1)
Quarter: 2023Q1

REPORT INFORMATION
  Report Type: Spontaneous
  Country: CZ (occurrence: CZ)
  Receive Date: 20230207
  Receipt Date: 20230207
  Transmission Date: 20230417
  Serious: Yes (Hospitalization, Other)
  Sender: FDA-Public Use
  Company Number: None

PATIENT
  Age: 26 Year
  Sex: Female
  Weight: 57 kg

DRUGS (2)
  1. DEPO-MEDROL [Suspect]
     Active Substance: METHYLPREDNISOLONE ACETATE
     Indication: Synovial cyst
     Dosage: UNK, SINGLE (DOSE UNKNOWN, SINGLE ADMINISTRATION)
     Route: 058
     Dates: start: 20221121, end: 20221121
  2. TRIMECAINE HYDROCHLORIDE [Suspect]
     Active Substance: TRIMECAINE HYDROCHLORIDE
     Indication: Synovial cyst
     Dosage: UNK (DOSE UNKNOWN)
     Route: 058
     Dates: start: 20221121, end: 20221121

REACTIONS (6)
  - Cellulitis [Recovered/Resolved]
  - Dermatitis [Recovered/Resolved]
  - Hypersensitivity [Recovered/Resolved]
  - Pruritus [Recovered/Resolved]
  - Oedema peripheral [Recovered/Resolved]
  - Rash [Recovered/Resolved]

NARRATIVE: CASE EVENT DATE: 20221122
